FAERS Safety Report 13733599 (Version 1)
Quarter: 2017Q3

REPORT INFORMATION
  Report Type: Other
  Country: CN (occurrence: CN)
  Receive Date: 20170707
  Receipt Date: 20170707
  Transmission Date: 20171127
  Serious: Yes (Other)
  Sender: FDA-Public Use
  Company Number: CN-GEHC-2017CSU001920

PATIENT

DRUGS (2)
  1. OMNIPAQUE [Suspect]
     Active Substance: IOHEXOL
     Indication: PULMONARY MASS
     Dosage: 100 ML, SINGLE
     Route: 042
     Dates: start: 20170418, end: 20170418
  2. OMNIPAQUE [Suspect]
     Active Substance: IOHEXOL
     Dosage: 1 ML, SINGLE
     Route: 065
     Dates: start: 20170418, end: 20170418

REACTIONS (4)
  - Pruritus [Recovered/Resolved]
  - Pharyngeal oedema [Recovered/Resolved]
  - Asphyxia [Recovered/Resolved]
  - Swelling face [Recovered/Resolved]

NARRATIVE: CASE EVENT DATE: 20170418
